FAERS Safety Report 6134651-3 (Version None)
Quarter: 2009Q1

REPORT INFORMATION
  Report Type: 
  Country: None (occurrence: None)
  Receive Date: 20090327
  Receipt Date: 20090319
  Transmission Date: 20090719
  Serious: Yes (Hospitalization, Other)
  Sender: FDA-Public Use
  Company Number: PHHY2009VE10409

PATIENT
  Sex: Female

DRUGS (1)
  1. EXJADE [Suspect]
     Dosage: 625 MG

REACTIONS (3)
  - BLOOD IRON INCREASED [None]
  - CARDIAC PACEMAKER INSERTION [None]
  - HEART VALVE REPLACEMENT [None]
